FAERS Safety Report 24900293 (Version 1)
Quarter: 2025Q1

REPORT INFORMATION
  Report Type: Spontaneous
  Country: US (occurrence: US)
  Receive Date: 20250129
  Receipt Date: 20250129
  Transmission Date: 20250409
  Serious: Yes (Other)
  Sender: AMGEN
  Company Number: US-AMGEN-USASP2025015639

PATIENT

DRUGS (2)
  1. ADALIMUMAB [Suspect]
     Active Substance: ADALIMUMAB
     Indication: Colitis ulcerative
     Route: 065
  2. INFLIXIMAB [Suspect]
     Active Substance: INFLIXIMAB
     Indication: Colitis ulcerative
     Route: 065

REACTIONS (9)
  - Crohn^s disease [Unknown]
  - Lymphoma [Unknown]
  - Leukaemia [Unknown]
  - Malignant melanoma [Unknown]
  - Skin cancer [Unknown]
  - Rectal cancer [Unknown]
  - Small intestine carcinoma [Unknown]
  - Failure to anastomose [Unknown]
  - Pouchitis [Unknown]
